FAERS Safety Report 6932461-8 (Version None)
Quarter: 2010Q3

REPORT INFORMATION
  Report Type: 
  Country: None (occurrence: None)
  Receive Date: 20100817
  Receipt Date: 20100803
  Transmission Date: 20110219
  Serious: Yes (Death, Hospitalization)
  Sender: FDA-Public Use
  Company Number: 1-18136696

PATIENT
  Sex: Male

DRUGS (13)
  1. QUININE SULFATE [Suspect]
     Indication: MUSCLE SPASMS
     Dosage: DAILY, ORAL
     Route: 048
     Dates: start: 20040211, end: 20041201
  2. QUININE SULFATE [Suspect]
     Indication: RESTLESS LEGS SYNDROME
     Dosage: DAILY, ORAL
     Route: 048
     Dates: start: 20030219, end: 20030711
  3. QUININE SULFATE [Suspect]
     Indication: MUSCLE SPASMS
     Dosage: DAILY, ORAL
     Route: 048
     Dates: start: 20030823, end: 20040923
  4. QUININE SULFATE [Suspect]
     Indication: RESTLESS LEGS SYNDROME
     Dosage: DAILY, ORAL
     Route: 048
     Dates: start: 20041109, end: 20041117
  5. LASIX [Concomitant]
  6. DIGOXIN [Concomitant]
  7. ACIPHEX [Concomitant]
  8. AMILORIDE HYDROCHLORIDE [Concomitant]
  9. OXYPURINOL [Concomitant]
  10. UROSODIOL [Concomitant]
  11. VALIUM [Concomitant]
  12. ZAROXOLYN [Concomitant]
  13. RESTORIL [Concomitant]

REACTIONS (9)
  - ABDOMINAL PAIN [None]
  - CARDIAC FAILURE CONGESTIVE [None]
  - CELLULITIS [None]
  - DIALYSIS [None]
  - DRUG HYPERSENSITIVITY [None]
  - INJURY [None]
  - RENAL FAILURE CHRONIC [None]
  - SKIN ULCER [None]
  - THROMBOCYTOPENIA [None]
